FAERS Safety Report 8620210-7 (Version None)
Quarter: 2012Q3

REPORT INFORMATION
  Report Type: 
  Country: None (occurrence: None)
  Receive Date: 20120824
  Receipt Date: 20120816
  Transmission Date: 20120928
  Serious: Yes (Hospitalization, Other)
  Sender: FDA-Public Use
  Company Number: JP-ASTRAZENECA-2012SE60491

PATIENT
  Sex: Male

DRUGS (2)
  1. AMLODIPINE [Concomitant]
     Route: 048
  2. CANDESARTAN CILEXETIL [Suspect]
     Route: 048

REACTIONS (7)
  - BLOOD CREATINE PHOSPHOKINASE INCREASED [None]
  - CARDIAC FAILURE [None]
  - NEPHRITIS [None]
  - CONVULSION [None]
  - LOSS OF CONSCIOUSNESS [None]
  - HYPONATRAEMIA [None]
  - URTICARIA [None]
